FAERS Safety Report 15860793 (Version 1)
Quarter: 2019Q1

REPORT INFORMATION
  Report Type: Spontaneous
  Country: US (occurrence: US)
  Receive Date: 20190124
  Receipt Date: 20190124
  Transmission Date: 20190417
  Serious: No
  Sender: FDA-Public Use
  Company Number: US-NATCO PHARMA LIMITED-2061677

PATIENT
  Sex: Female

DRUGS (1)
  1. RIZATRIPTAN BENZOATE TABLETS, 5 MG AND 10 MG [Suspect]
     Active Substance: RIZATRIPTAN BENZOATE
     Indication: MIGRAINE

REACTIONS (2)
  - Vomiting projectile [Unknown]
  - Drug effect incomplete [Unknown]
